FAERS Safety Report 12800592 (Version 3)
Quarter: 2016Q4

REPORT INFORMATION
  Report Type: Report from Study
  Country: None (occurrence: US)
  Receive Date: 20160930
  Receipt Date: 20161103
  Transmission Date: 20170207
  Serious: Yes (Disabling, Other)
  Sender: FDA-Public Use
  Company Number: US-ABBVIE-16P-163-1741778-00

PATIENT
  Age: 51 Year
  Sex: Male

DRUGS (2)
  1. EPOGEN [Concomitant]
     Active Substance: ERYTHROPOIETIN
     Indication: ANAEMIA
  2. HUMIRA [Suspect]
     Active Substance: ADALIMUMAB
     Indication: HIDRADENITIS
     Route: 058

REACTIONS (8)
  - Surgery [Unknown]
  - Injection site papule [Recovered/Resolved]
  - Staphylococcal infection [Recovered/Resolved]
  - Hidradenitis [Unknown]
  - Injection site reaction [Unknown]
  - Impaired healing [Unknown]
  - Injection site pain [Not Recovered/Not Resolved]
  - Pain [Unknown]

NARRATIVE: CASE EVENT DATE: 201609
